FAERS Safety Report 4941179-2 (Version None)
Quarter: 2006Q1

REPORT INFORMATION
  Report Type: 
  Country: None (occurrence: None)
  Receive Date: 20060310
  Receipt Date: 20060310
  Transmission Date: 20060701
  Serious: Yes (Death, Hospitalization)
  Sender: FDA-Public Use
  Company Number: None

PATIENT
  Age: 71 Year
  Sex: Male
  Weight: 70 kg

DRUGS (2)
  1. PEMETREXED - ELI LILLY [Suspect]
     Indication: NON-SMALL CELL LUNG CANCER
     Dosage: 500MG/M2 Q 21 DAYS IV
     Route: 042
     Dates: start: 20050802, end: 20060207
  2. BEVACIZUMAB - BEVACIZUMAB [Suspect]
     Indication: NON-SMALL CELL LUNG CANCER
     Dosage: 15 MG/KG Q 21 DAYS IV
     Route: 042
     Dates: start: 20050802, end: 20060207

REACTIONS (2)
  - PNEUMONIA [None]
  - THERAPY NON-RESPONDER [None]
